FAERS Safety Report 9626126 (Version 1)
Quarter: 2013Q4

REPORT INFORMATION
  Report Type: Spontaneous
  Country: US (occurrence: None)
  Receive Date: 20131015
  Receipt Date: 20131015
  Transmission Date: 20140711
  Serious: Yes (Other)
  Sender: FDA-Public Use
  Company Number: None

PATIENT
  Age: 60 Year
  Sex: Female
  Weight: 58.51 kg

DRUGS (1)
  1. MOMETASONE FUROATE [Suspect]
     Indication: VITILIGO
     Dosage: APPLIED TO A SURFACE, USUALLY THE SKIN
     Route: 061
     Dates: start: 20130916, end: 20131008

REACTIONS (5)
  - Dizziness [None]
  - Dyspnoea [None]
  - Swollen tongue [None]
  - Chest pain [None]
  - Myocardial infarction [None]
